FAERS Safety Report 8728392 (Version 2)
Quarter: 2012Q4

REPORT INFORMATION
  Report Type: 
  Country: IT (occurrence: IT)
  Receive Date: 20120817
  Receipt Date: 20120920
  Transmission Date: 20130627
  Serious: Yes (Hospitalization, Other)
  Sender: FDA-Public Use
  Company Number: IT-RANBAXY-2012RR-58621

PATIENT
  Age: 91 Year
  Sex: Female

DRUGS (11)
  1. LEVOFLOXACIN [Suspect]
     Indication: BACTERIAL INFECTION
     Dosage: 500 mg/day
     Route: 048
  2. LEVOFLOXACIN [Suspect]
     Dosage: 500 mg/day
     Route: 048
  3. TRAMADOL [Interacting]
     Indication: PAIN
     Dosage: XX drops when required
     Route: 048
  4. GLIBENCLAMIDE\METFORMIN [Interacting]
     Indication: TYPE 2 DIABETES MELLITUS
     Dosage: 2.5/400 mg, tid
     Route: 048
  5. NADROPARIN CALCIUM [Interacting]
     Indication: ISCHAEMIC STROKE
     Dosage: 3800 IU/day
     Route: 058
  6. BUPRENORPHINE [Interacting]
     Indication: PAIN
     Dosage: 35 ?g, q1h
     Route: 062
  7. ENALAPRIL\HYDROCHLOROTHIAZIDE [Suspect]
     Indication: HYPERTENSION
     Dosage: 20 mg/12.5 mg, qd
     Route: 048
  8. ACETYLSALICYLIC ACID [Suspect]
     Indication: ANTIPLATELET THERAPY
     Dosage: 100 mg, qd
     Route: 048
  9. LANSOPRAZOLE [Suspect]
     Indication: PROPHYLAXIS
     Dosage: 30 mg, UNK
     Route: 065
  10. ENALAPRIL [Suspect]
     Indication: HYPERTENSION
     Dosage: 20 mg, qd
     Route: 065
  11. INSULIN [Interacting]
     Indication: TYPE 2 DIABETES MELLITUS
     Dosage: UNK
     Route: 065

REACTIONS (6)
  - Hypoglycaemia [Recovered/Resolved]
  - Peripheral artery thrombosis [Recovered/Resolved]
  - Condition aggravated [Recovered/Resolved]
  - Coma [Recovered/Resolved]
  - Drug interaction [Recovered/Resolved]
  - Localised infection [None]
